FAERS Safety Report 21613901 (Version 2)
Quarter: 2023Q1

REPORT INFORMATION
  Report Type: Report from Study
  Country: US (occurrence: US)
  Receive Date: 20221118
  Receipt Date: 20230112
  Transmission Date: 20230418
  Serious: Yes (Other)
  Sender: FDA-Public Use
  Company Number: US-ABBVIE-4205696

PATIENT
  Age: 76 Year
  Sex: Female
  Weight: 56.245 kg

DRUGS (5)
  1. HUMIRA [Suspect]
     Active Substance: ADALIMUMAB
     Indication: Ankylosing spondylitis
     Dosage: CITRATE FREE
     Route: 058
     Dates: start: 2021, end: 20221224
  2. NOVOLOG [Concomitant]
     Active Substance: INSULIN ASPART
     Indication: Diabetes mellitus
     Route: 065
  3. OTEZLA [Concomitant]
     Active Substance: APREMILAST
     Indication: Psoriasis
     Route: 065
  4. BASAGLAR [Concomitant]
     Active Substance: INSULIN GLARGINE
     Indication: Product used for unknown indication
     Route: 065
  5. METOPROLOL [Concomitant]
     Active Substance: METOPROLOL
     Indication: Obstruction
     Route: 065

REACTIONS (7)
  - Angina pectoris [Unknown]
  - Chest pain [Recovering/Resolving]
  - Myocardial infarction [Unknown]
  - Electrocardiogram T wave inversion [Recovering/Resolving]
  - Stress [Recovered/Resolved]
  - Arterial occlusive disease [Recovering/Resolving]
  - Blood triglycerides increased [Recovering/Resolving]

NARRATIVE: CASE EVENT DATE: 20220701
